FAERS Safety Report 13853458 (Version 1)
Quarter: 2017Q3

REPORT INFORMATION
  Report Type: Spontaneous
  Country: US (occurrence: US)
  Receive Date: 20170809
  Receipt Date: 20170809
  Transmission Date: 20171127
  Serious: Yes (Other)
  Sender: FDA-Public Use
  Company Number: US-TEVA-794623ACC

PATIENT
  Sex: Female

DRUGS (6)
  1. DRYSOL [Concomitant]
     Active Substance: ALUMINUM CHLORIDE
     Dosage: TOPICAL SOLUTION
     Route: 061
  2. GLUCOSAMINE [Concomitant]
     Active Substance: GLUCOSAMINE
  3. TRETINOIN. [Concomitant]
     Active Substance: TRETINOIN
     Route: 061
  4. PARAGARD T 380A [Suspect]
     Active Substance: COPPER
     Indication: CONTRACEPTION
     Dates: start: 20170530, end: 20170629
  5. VITAMIN D3 [Concomitant]
     Active Substance: CHOLECALCIFEROL
  6. SERTRALINE [Concomitant]
     Active Substance: SERTRALINE HYDROCHLORIDE

REACTIONS (3)
  - Device dislocation [Recovered/Resolved]
  - Embedded device [Recovered/Resolved]
  - Complication associated with device [Recovered/Resolved]
